FAERS Safety Report 14602642 (Version 6)
Quarter: 2018Q2

REPORT INFORMATION
  Report Type: Report from Study
  Country: JP (occurrence: JP)
  Receive Date: 20180306
  Receipt Date: 20180605
  Transmission Date: 20180711
  Serious: Yes (Hospitalization, Other)
  Sender: FDA-Public Use
  Company Number: JP-ASTELLAS-2017JP024871

PATIENT
  Age: 83 Year
  Sex: Male
  Weight: 47 kg

DRUGS (84)
  1. COSOPT [Concomitant]
     Active Substance: DORZOLAMIDE HYDROCHLORIDE\TIMOLOL MALEATE
     Indication: GLAUCOMA
     Dosage: 1 DROP, TWICE DAILY
     Route: 047
     Dates: start: 20130826
  2. FML [Concomitant]
     Active Substance: FLUOROMETHOLONE
     Indication: CATARACT
     Dosage: 1 DROP, THRICE DAILY
     Route: 047
     Dates: start: 20170123
  3. CEFZON [Concomitant]
     Active Substance: CEFDINIR
     Indication: UPPER RESPIRATORY TRACT INFECTION
     Route: 048
     Dates: start: 20171110, end: 20171114
  4. HUSTAZOL                           /00398402/ [Concomitant]
     Indication: UPPER RESPIRATORY TRACT INFECTION
     Route: 048
     Dates: start: 20171110, end: 20171114
  5. OMNIPAQUE [Concomitant]
     Active Substance: IOHEXOL
     Route: 042
     Dates: start: 20171226, end: 20171226
  6. SOLYUGEN [Concomitant]
     Indication: PRODUCT USED FOR UNKNOWN INDICATION
     Route: 042
     Dates: start: 20180426, end: 20180427
  7. SOLITA-T3 [Concomitant]
     Active Substance: POTASSIUM CHLORIDE\SODIUM CHLORIDE\SODIUM LACTATE
     Dosage: UNK UNK, UNKNOWN FREQ.
     Route: 042
     Dates: start: 20180429, end: 20180429
  8. ACELIO [Concomitant]
     Active Substance: ACETAMINOPHEN
     Indication: LAPAROSCOPIC SURGERY
     Route: 042
     Dates: start: 20180426, end: 20180426
  9. ESLAX [Concomitant]
     Active Substance: ROCURONIUM BROMIDE
     Indication: LAPAROSCOPIC SURGERY
     Route: 042
     Dates: start: 20180426, end: 20180426
  10. LEUPLIN [Concomitant]
     Active Substance: LEUPROLIDE ACETATE
     Indication: HORMONE-REFRACTORY PROSTATE CANCER
     Dosage: 11.25 MG, ONCE IN 12 WEEKS
     Route: 058
     Dates: start: 20151112
  11. ATORVASTATIN                       /01326102/ [Concomitant]
     Active Substance: ATORVASTATIN
     Indication: HYPERLIPIDAEMIA
     Route: 048
     Dates: start: 20160209, end: 20180425
  12. DOMPERIDONE [Concomitant]
     Active Substance: DOMPERIDONE
     Indication: DECREASED APPETITE
     Route: 048
     Dates: end: 20170324
  13. PURSENNID                          /00142207/ [Concomitant]
     Active Substance: SENNA LEAF
     Indication: CONSTIPATION
     Dosage: 2 TABLETS, ONCE DAILY
     Route: 048
     Dates: end: 20180122
  14. LIMAPROST ALFADEX [Concomitant]
     Active Substance: LIMAPROST
     Dosage: UNK UNK, UNKNOWN FREQ.
     Route: 048
     Dates: start: 20180429
  15. TECHNE MDP [Concomitant]
     Route: 042
     Dates: start: 20171010, end: 20171010
  16. OYPALOMIN [Concomitant]
     Active Substance: IOPAMIDOL
     Route: 042
     Dates: start: 20180312, end: 20180312
  17. MOVIPREP [Concomitant]
     Active Substance: ASCORBIC ACID\POLYETHYLENE GLYCOL 3350\POTASSIUM CHLORIDE\SODIUM ASCORBATE\SODIUM CHLORIDE\SODIUM SULFATE
     Indication: ENDOSCOPY
     Dosage: 1 PACKET, ONCE DAILY
     Route: 048
     Dates: start: 20180308, end: 20180308
  18. PETHIDINE HYDROCHLORIDE [Concomitant]
     Active Substance: MEPERIDINE HYDROCHLORIDE
     Indication: ENDOSCOPY
     Route: 065
     Dates: start: 20180308, end: 20180308
  19. SOLULACT D [Concomitant]
     Indication: PRODUCT USED FOR UNKNOWN INDICATION
     Route: 042
     Dates: start: 20180427, end: 20180428
  20. CLEXANE [Concomitant]
     Active Substance: ENOXAPARIN SODIUM
     Indication: PRODUCT USED FOR UNKNOWN INDICATION
     Dosage: 0.2 ML, TWICE DAILY
     Route: 042
     Dates: start: 20180428, end: 20180504
  21. FLUTAMIDE. [Suspect]
     Active Substance: FLUTAMIDE
     Indication: HORMONE-REFRACTORY PROSTATE CANCER
     Route: 048
     Dates: start: 20170412, end: 20170707
  22. MIYA-BM [Concomitant]
     Active Substance: CLOSTRIDIUM BUTYRICUM SPORES STRAIN M-55
     Indication: CONSTIPATION
     Dosage: 1 TABLET, ONCE DAILY
     Route: 048
     Dates: end: 20170324
  23. CELECOX [Concomitant]
     Active Substance: CELECOXIB
     Indication: LUMBAR SPINAL STENOSIS
     Route: 048
     Dates: start: 20120406, end: 20180425
  24. ARTZ [Concomitant]
     Active Substance: HYALURONATE SODIUM
     Indication: OSTEOARTHRITIS
     Route: 014
     Dates: start: 20170123
  25. URSODEOXYCHOLIC ACID [Concomitant]
     Active Substance: URSODIOL
     Indication: HEPATIC FUNCTION ABNORMAL
     Route: 048
     Dates: start: 20170623, end: 20180425
  26. TECHNE MDP [Concomitant]
     Route: 042
     Dates: start: 20171212, end: 20171212
  27. SOLITA-T3 [Concomitant]
     Active Substance: POTASSIUM CHLORIDE\SODIUM CHLORIDE\SODIUM LACTATE
     Indication: PRODUCT USED FOR UNKNOWN INDICATION
     Route: 042
     Dates: start: 20180427, end: 20180428
  28. BFLUID [Concomitant]
     Active Substance: AMINO ACIDS\DEXTROSE\ELECTROLYTES NOS\VITAMINS
     Indication: PRODUCT USED FOR UNKNOWN INDICATION
     Route: 042
     Dates: start: 20180427, end: 20180428
  29. PHYSIOLOGICAL SALINE SOLUTION [Concomitant]
     Active Substance: SODIUM CHLORIDE
     Route: 065
     Dates: start: 20180427, end: 20180427
  30. VENETLIN [Concomitant]
     Active Substance: ALBUTEROL SULFATE
     Indication: PRODUCT USED FOR UNKNOWN INDICATION
     Dosage: UNK UNK, UNKNOWN FREQ.
     Route: 055
     Dates: start: 20180427, end: 20180428
  31. TELMISARTAN. [Concomitant]
     Active Substance: TELMISARTAN
     Indication: HYPERTENSION
     Dosage: UNK UNK, UNKNOWN FREQ.
     Route: 048
     Dates: start: 20180429
  32. ENZALUTAMIDE [Suspect]
     Active Substance: ENZALUTAMIDE
     Route: 048
     Dates: start: 20180428
  33. AMLODIPINE                         /00972402/ [Concomitant]
     Active Substance: AMLODIPINE BESYLATE
     Route: 048
     Dates: start: 20180429
  34. REBAMIPIDE [Concomitant]
     Active Substance: REBAMIPIDE
     Indication: GASTRITIS
     Route: 048
     Dates: start: 20120406, end: 20180425
  35. COSPANON [Concomitant]
     Active Substance: FLOPROPIONE
     Indication: HEPATIC FUNCTION ABNORMAL
     Route: 048
     Dates: start: 20170623, end: 20170707
  36. ANETOCAINE [Concomitant]
     Indication: ENDOSCOPY
     Dosage: UNK UNK, UNKNOWN FREQ.
     Route: 061
     Dates: start: 20180307, end: 20180307
  37. PRANOPROFEN [Concomitant]
     Active Substance: PRANOPROFEN
     Indication: CATARACT
     Dosage: 1 DROP, THRICE DAILY
     Route: 047
     Dates: start: 20170421
  38. ADONA                              /00056903/ [Concomitant]
     Active Substance: CARBAZOCHROME SODIUM SULFONATE
     Indication: BRONCHOSCOPY
     Route: 041
     Dates: start: 20180130, end: 20180130
  39. CEFMETAZOLE                        /00528702/ [Concomitant]
     Indication: PRODUCT USED FOR UNKNOWN INDICATION
     Route: 042
     Dates: start: 20180426, end: 20180426
  40. ACELIO [Concomitant]
     Active Substance: ACETAMINOPHEN
     Route: 042
     Dates: start: 20180427, end: 20180428
  41. TECHNE MDP [Concomitant]
     Route: 042
     Dates: start: 20170704, end: 20170704
  42. OMNIPAQUE [Concomitant]
     Active Substance: IOHEXOL
     Indication: COMPUTERISED TOMOGRAM
     Route: 042
     Dates: start: 20171010, end: 20171010
  43. TRANEXAMIC ACID. [Concomitant]
     Active Substance: TRANEXAMIC ACID
     Indication: BRONCHOSCOPY
     Route: 041
     Dates: start: 20180130, end: 20180130
  44. MAGCOROL                           /00434501/ [Concomitant]
     Indication: PRODUCT USED FOR UNKNOWN INDICATION
     Route: 048
     Dates: start: 20180425, end: 20180425
  45. BICANATE [Concomitant]
     Indication: LAPAROSCOPIC SURGERY
     Route: 042
     Dates: start: 20180426, end: 20180426
  46. ANAPEINE [Concomitant]
     Active Substance: ROPIVACAINE HYDROCHLORIDE
     Indication: NERVE BLOCK
     Route: 042
     Dates: start: 20180426, end: 20180426
  47. BROMHEXINE HYDROCHLORIDE [Concomitant]
     Active Substance: BROMHEXINE HYDROCHLORIDE
     Indication: PRODUCT USED FOR UNKNOWN INDICATION
     Dosage: UNK UNK, UNKNOWN FREQ.
     Route: 055
     Dates: start: 20180427, end: 20180428
  48. MICARDIS [Concomitant]
     Active Substance: TELMISARTAN
     Indication: HYPERTENSION
     Route: 048
     Dates: start: 20120501, end: 20180425
  49. MICARDIS [Concomitant]
     Active Substance: TELMISARTAN
     Route: 048
     Dates: start: 20180429
  50. LIMAPROST ALFADEX [Concomitant]
     Active Substance: LIMAPROST
     Indication: LUMBAR SPINAL STENOSIS
     Route: 048
     Dates: start: 20120406, end: 20170122
  51. CELECOX [Concomitant]
     Active Substance: CELECOXIB
     Route: 048
     Dates: start: 20180429
  52. LUMIGAN [Concomitant]
     Active Substance: BIMATOPROST
     Indication: GLAUCOMA
     Dosage: 1 DROP, ONCE DAILY
     Route: 047
     Dates: start: 20130826
  53. TRANSAMIN [Concomitant]
     Active Substance: TRANEXAMIC ACID
     Indication: UPPER RESPIRATORY TRACT INFECTION
     Route: 048
     Dates: start: 20171110, end: 20171119
  54. TECHNE MDP [Concomitant]
     Indication: BONE SCAN
     Route: 042
     Dates: start: 20170328, end: 20170328
  55. SENNOSIDE                          /00571901/ [Concomitant]
     Active Substance: SENNOSIDES A AND B
     Indication: ENDOSCOPY
     Route: 048
     Dates: start: 20180307, end: 20180307
  56. CLEAR BONE [Concomitant]
     Indication: BONE SCAN
     Route: 041
     Dates: start: 20180319, end: 20180319
  57. SODIUM PICOSULFATE [Concomitant]
     Active Substance: SODIUM PICOSULFATE
     Indication: PRODUCT USED FOR UNKNOWN INDICATION
     Route: 048
     Dates: start: 20180425, end: 20180425
  58. EFFORTIL [Concomitant]
     Active Substance: ETILEFRINE HYDROCHLORIDE
     Indication: LAPAROSCOPIC SURGERY
     Route: 042
     Dates: start: 20180426, end: 20180426
  59. SEVOFLURANE. [Concomitant]
     Active Substance: SEVOFLURANE
     Indication: LAPAROSCOPIC SURGERY
     Dosage: 69.74 ML, ONCE DAILY
     Route: 065
     Dates: start: 20180426, end: 20180426
  60. ELIETEN                            /00041902/ [Concomitant]
     Indication: LAPAROSCOPIC SURGERY
     Route: 042
     Dates: start: 20180426, end: 20180426
  61. ALOSITOL [Concomitant]
     Active Substance: ALLOPURINOL
     Indication: HYPERURICAEMIA
     Route: 048
     Dates: start: 20120821, end: 20180425
  62. MAGMITT [Concomitant]
     Active Substance: MAGNESIUM OXIDE
     Indication: CONSTIPATION
     Route: 048
     Dates: end: 20170324
  63. EPERISONE                          /01071502/ [Concomitant]
     Indication: LUMBAR SPINAL STENOSIS
     Route: 048
     Dates: start: 20140512, end: 20180425
  64. REBAMIPIDE [Concomitant]
     Active Substance: REBAMIPIDE
     Route: 048
     Dates: start: 20180429
  65. XYLOCAINE                          /00033402/ [Concomitant]
     Active Substance: LIDOCAINE HYDROCHLORIDE
     Indication: CATHETER MANAGEMENT
     Dosage: APPROPRIATE DOSE
     Route: 061
  66. ANETOCAINE [Concomitant]
     Indication: CATHETER MANAGEMENT
     Dosage: APPROPRIATE DOSE, AS NEEDED (WHEN REPLACED THE CATHETER PLACED IN BLADDER)
     Route: 061
     Dates: start: 20171031
  67. TALION                             /01393102/ [Concomitant]
     Indication: UPPER RESPIRATORY TRACT INFECTION
     Route: 048
     Dates: start: 20171114, end: 20171118
  68. MIDAZOLAM [Concomitant]
     Active Substance: MIDAZOLAM HYDROCHLORIDE
     Indication: BRONCHOSCOPY
     Route: 042
     Dates: start: 20180130, end: 20180130
  69. BEPOTASTINE BESILATE [Concomitant]
     Active Substance: BEPOTASTINE BESILATE
     Indication: UPPER RESPIRATORY TRACT INFLAMMATION
     Route: 048
     Dates: start: 20171114, end: 20171118
  70. PAREPLUS [Concomitant]
     Active Substance: AMINO ACIDS\DEXTROSE\ELECTROLYTES NOS\VITAMINS
     Indication: PRODUCT USED FOR UNKNOWN INDICATION
     Route: 042
     Dates: start: 20180429, end: 20180501
  71. PROPOFOL. [Concomitant]
     Active Substance: PROPOFOL
     Indication: LAPAROSCOPIC SURGERY
     Route: 042
     Dates: start: 20180426, end: 20180426
  72. ROPION [Concomitant]
     Active Substance: FLURBIPROFEN AXETIL
     Indication: LAPAROSCOPIC SURGERY
     Route: 042
     Dates: start: 20180426, end: 20180426
  73. FENTANYL                           /00174602/ [Concomitant]
     Active Substance: FENTANYL
     Indication: LAPAROSCOPIC SURGERY
     Route: 042
     Dates: start: 20180426, end: 20180426
  74. ENZALUTAMIDE [Suspect]
     Active Substance: ENZALUTAMIDE
     Indication: HORMONE-REFRACTORY PROSTATE CANCER
     Route: 048
     Dates: start: 20170802, end: 20180425
  75. AMLODIPINE                         /00972402/ [Concomitant]
     Active Substance: AMLODIPINE BESYLATE
     Indication: HYPERTENSION
     Route: 048
     Dates: start: 20120501, end: 20180426
  76. OYPALOMIN [Concomitant]
     Active Substance: IOPAMIDOL
     Indication: COMPUTERISED TOMOGRAM
     Route: 042
     Dates: start: 20171226, end: 20171226
  77. FDG SCAN [Concomitant]
     Indication: POSITRON EMISSION TOMOGRAM
     Route: 042
     Dates: start: 20180223, end: 20180223
  78. SENNOSIDE                          /00571901/ [Concomitant]
     Active Substance: SENNOSIDES A AND B
     Route: 048
     Dates: start: 20180425, end: 20180425
  79. GLUCAGON G [Concomitant]
     Indication: ENDOSCOPY
     Dosage: UNK UNK, UNKNOWN FREQ.
     Route: 042
     Dates: start: 20180308, end: 20180308
  80. INDIGOCARMINE DAIICHI [Concomitant]
     Indication: ENDOSCOPY
     Dosage: UNK UNK, UNKNOWN FREQ.
     Route: 042
     Dates: start: 20180308, end: 20180308
  81. CEFMETAZOLE                        /00528702/ [Concomitant]
     Route: 042
     Dates: start: 20180427, end: 20180427
  82. PHYSIOLOGICAL SALINE SOLUTION [Concomitant]
     Active Substance: SODIUM CHLORIDE
     Indication: PRODUCT USED FOR UNKNOWN INDICATION
     Route: 065
     Dates: start: 20180426, end: 20180426
  83. REMIFENTANIL                       /01229902/ [Concomitant]
     Active Substance: REMIFENTANIL HYDROCHLORIDE
     Indication: LAPAROSCOPIC SURGERY
     Route: 042
     Dates: start: 20180426, end: 20180426
  84. ATROPINE SULFATE MONOHYDRATE [Concomitant]
     Indication: LAPAROSCOPIC SURGERY
     Dosage: 0.5 MG, ONCE DAILY
     Route: 042
     Dates: start: 20180426, end: 20180426

REACTIONS (6)
  - Calculus bladder [Recovered/Resolved]
  - Postoperative delirium [Recovered/Resolved]
  - Colon cancer [Recovering/Resolving]
  - Lung neoplasm malignant [Not Recovered/Not Resolved]
  - Weight decreased [Recovered/Resolved]
  - Upper respiratory tract infection [Recovered/Resolved]

NARRATIVE: CASE EVENT DATE: 20170817
